FAERS Safety Report 23452212 (Version 1)
Quarter: 2024Q1

REPORT INFORMATION
  Report Type: Report from Study
  Country: US (occurrence: US)
  Receive Date: 20240129
  Receipt Date: 20240129
  Transmission Date: 20240409
  Serious: Yes (Death, Hospitalization)
  Sender: FDA-Public Use
  Company Number: US-JNJFOC-20231240768

PATIENT
  Age: 58 Year
  Sex: Female
  Weight: 131.08 kg

DRUGS (2)
  1. EPOPROSTENOL SODIUM [Suspect]
     Active Substance: EPOPROSTENOL SODIUM
     Indication: Pulmonary arterial hypertension
     Dosage: VELETRI 1.5MG VIAL INTRAVENOUS
     Route: 042
     Dates: start: 20220511
  2. OPSUMIT [Concomitant]
     Active Substance: MACITENTAN
     Indication: Pulmonary arterial hypertension
     Dates: start: 202206

REACTIONS (5)
  - Death [Fatal]
  - Dyspnoea [Recovered/Resolved]
  - Respiratory disorder [Unknown]
  - Device alarm issue [Recovered/Resolved]
  - Product administration interrupted [Unknown]

NARRATIVE: CASE EVENT DATE: 20231213
